FAERS Safety Report 6062119-1 (Version None)
Quarter: 2009Q1

REPORT INFORMATION
  Report Type: 
  Country: None (occurrence: None)
  Receive Date: 20090203
  Receipt Date: 20090123
  Transmission Date: 20090719
  Serious: Yes (Other)
  Sender: FDA-Public Use
  Company Number: JP-BAYER-200910245BYL

PATIENT
  Age: 64 Year
  Sex: Male
  Weight: 85 kg

DRUGS (2)
  1. NEXAVAR [Suspect]
     Indication: RENAL CELL CARCINOMA STAGE IV
     Dosage: UNIT DOSE: 200 MG
     Route: 048
     Dates: start: 20080509, end: 20080703
  2. NEXAVAR [Suspect]
     Route: 048
     Dates: end: 20080814

REACTIONS (2)
  - ALOPECIA [None]
  - HEPATIC FUNCTION ABNORMAL [None]
